FAERS Safety Report 13093772 (Version 1)
Quarter: 2017Q1

REPORT INFORMATION
  Report Type: Spontaneous
  Country: JP (occurrence: JP)
  Receive Date: 20170106
  Receipt Date: 20170106
  Transmission Date: 20170428
  Serious: Yes (Hospitalization)
  Sender: FDA-Public Use
  Company Number: JP-ABBVIE-16P-087-1796268-00

PATIENT
  Age: 88 Year
  Sex: Female

DRUGS (7)
  1. UNKNOWN DRUG (MIDAZOLAM) [Concomitant]
     Indication: INDUCTION OF ANAESTHESIA
     Route: 042
     Dates: start: 20160927, end: 20160927
  2. UNKNOWN DRUG (FENTANYL CITRATE) [Concomitant]
     Indication: ANALGESIC THERAPY
     Route: 042
     Dates: start: 20160927, end: 20160927
  3. ESLAX INTRAVENOUS (ROCURONIUM BROMIDE) [Concomitant]
     Indication: HYPOTONIA
     Route: 042
     Dates: start: 20160927, end: 20160927
  4. POPSCAINE [Suspect]
     Active Substance: LEVOBUPIVACAINE HYDROCHLORIDE
     Indication: ANALGESIC THERAPY
     Route: 065
     Dates: start: 20160927, end: 20160927
  5. ULTIVA INTRAVENOUS (REMIFENTANIL HYDROCHLORIDE) [Concomitant]
     Indication: ANALGESIC THERAPY
     Route: 042
     Dates: start: 20160927, end: 20160927
  6. UNKNOWN DRUG (CEFAZOLIN SODIUM) [Concomitant]
     Indication: INFECTION PROPHYLAXIS
     Route: 042
     Dates: start: 20160927, end: 20160927
  7. UNKNOWN DRUG (SEVOFLURANE) [Concomitant]
     Indication: MAINTENANCE OF ANAESTHESIA
     Dosage: 1% TO 2% (1 IN 1 DAY)
     Route: 055
     Dates: start: 20160927, end: 20160927

REACTIONS (1)
  - Blood pressure decreased [Recovered/Resolved]

NARRATIVE: CASE EVENT DATE: 20160927
